FAERS Safety Report 7104048-8 (Version None)
Quarter: 2010Q4

REPORT INFORMATION
  Report Type: 
  Country: None (occurrence: None)
  Receive Date: 20101115
  Receipt Date: 20100518
  Transmission Date: 20110411
  Serious: No
  Sender: FDA-Public Use
  Company Number: US-ALLERGAN-1006510US

PATIENT
  Age: 68 Year
  Sex: Female

DRUGS (1)
  1. BOTOXA? [Suspect]
     Indication: FACIAL SPASM
     Dosage: 20 UNITS, SINGLE
     Dates: start: 20100429, end: 20100429

REACTIONS (2)
  - EYELID PTOSIS [None]
  - VISION BLURRED [None]
